FAERS Safety Report 9553735 (Version 1)
Quarter: 2013Q3

REPORT INFORMATION
  Report Type: Spontaneous
  Country: FR (occurrence: FR)
  Receive Date: 20130925
  Receipt Date: 20130925
  Transmission Date: 20140515
  Serious: Yes (Hospitalization)
  Sender: FDA-Public Use
  Company Number: FR-JNJFOC-20130910029

PATIENT
  Age: 74 Year
  Sex: Female

DRUGS (16)
  1. RISPERDALORO [Suspect]
     Indication: DEPRESSION
     Route: 048
     Dates: start: 201205, end: 20120613
  2. CEFTRIAXONE PANPHARMA [Suspect]
     Indication: PRODUCT USED FOR UNKNOWN INDICATION
     Route: 042
     Dates: start: 20120605, end: 20120609
  3. METRONIDAZOLE BRAUN [Suspect]
     Indication: PRODUCT USED FOR UNKNOWN INDICATION
     Route: 042
     Dates: start: 20120608, end: 20120609
  4. ARIXTRA [Suspect]
     Indication: THROMBOSIS PROPHYLAXIS
     Route: 058
     Dates: start: 201205
  5. PERFALGAN [Suspect]
     Indication: PAIN
     Route: 042
     Dates: start: 20120605, end: 20120608
  6. BISOPROLOL [Suspect]
     Indication: CARDIAC FAILURE
     Route: 048
     Dates: start: 20120607, end: 20120608
  7. AMLODIPINE [Suspect]
     Indication: HYPERTENSION
     Route: 048
     Dates: start: 20120602
  8. CRESTOR [Suspect]
     Indication: DYSLIPIDAEMIA
     Route: 048
     Dates: start: 2012, end: 20120608
  9. DIFFU K [Suspect]
     Indication: HYPOKALAEMIA
     Route: 058
     Dates: start: 20120530
  10. VENLAFAXINE ARROW LP [Suspect]
     Indication: DEPRESSION
     Route: 048
     Dates: end: 20120612
  11. COLECALCIFEROL [Suspect]
     Indication: VITAMIN D DEFICIENCY
     Route: 048
     Dates: start: 20120606, end: 20120607
  12. HEMIGOXINE NATIVELLE [Suspect]
     Indication: CARDIAC FAILURE
     Route: 048
     Dates: start: 20120601
  13. LASILIX [Suspect]
     Indication: CARDIAC FAILURE
     Route: 048
     Dates: start: 20120530, end: 20120605
  14. KARDEGIC [Concomitant]
     Route: 065
  15. TRANSIPEG [Concomitant]
     Route: 065
  16. TARDYFERON [Concomitant]
     Route: 065

REACTIONS (2)
  - Hepatitis [Recovered/Resolved]
  - Off label use [Unknown]
